FAERS Safety Report 22189935 (Version 1)
Quarter: 2023Q2

REPORT INFORMATION
  Report Type: Spontaneous
  Country: CA (occurrence: CA)
  Receive Date: 20230410
  Receipt Date: 20230410
  Transmission Date: 20230722
  Serious: Yes (Other)
  Sender: FDA-Public Use
  Company Number: CA-ORGANON-O2304CAN000502

PATIENT
  Weight: 3 kg

DRUGS (10)
  1. DIPROSONE [Suspect]
     Active Substance: BETAMETHASONE DIPROPIONATE
     Indication: Foetal heart rate abnormal
     Dosage: 12.0 MILLIGRAM
     Route: 064
  2. AMOXICILLIN\CLAVULANATE POTASSIUM [Suspect]
     Active Substance: AMOXICILLIN\CLAVULANATE POTASSIUM
     Indication: Pneumonia bacterial
     Dosage: UNK
     Route: 064
  3. AZITHROMYCIN [Suspect]
     Active Substance: AZITHROMYCIN
     Indication: Pneumonia bacterial
     Dosage: 500.0 MILLIGRAM, 2 EVERY 1 DAYS,(DOSAGE FORM:NOT SPECIFIED)
     Route: 064
  4. CEFTRIAXONE [Suspect]
     Active Substance: CEFTRIAXONE
     Indication: Pneumonia bacterial
     Dosage: 2.0 GRAM,1 EVERY 1 DAYS
     Route: 064
  5. DALTEPARIN SODIUM [Suspect]
     Active Substance: DALTEPARIN SODIUM
     Indication: Thrombosis prophylaxis
     Dosage: UNK
     Route: 064
  6. FENTANYL [Suspect]
     Active Substance: FENTANYL
     Indication: Sedation
     Dosage: UNK,(DOSAGE FORM:NOT SPECIFIED)
     Route: 064
  7. FUROSEMIDE [Suspect]
     Active Substance: FUROSEMIDE
     Indication: Non-cardiogenic pulmonary oedema
     Dosage: UNK,(DOSAGE FORM:NOT SPECIFIED)
     Route: 064
  8. HYDROXYCHLOROQUINE [Suspect]
     Active Substance: HYDROXYCHLOROQUINE
     Indication: Pneumonia bacterial
     Dosage: 200 MILLIGRAM, 3 EVERY 1 DAYS
     Route: 064
  9. MIDAZOLAM [Suspect]
     Active Substance: MIDAZOLAM
     Indication: Sedation
     Dosage: UNK
     Route: 064
  10. PROPOFOL [Suspect]
     Active Substance: PROPOFOL
     Indication: Sedation
     Dosage: UNK,(DOSAGE FORM:NOT SPECIFIED)
     Route: 064

REACTIONS (2)
  - Foetal exposure during pregnancy [Recovered/Resolved]
  - Foetal heart rate deceleration abnormality [Recovered/Resolved]
